FAERS Safety Report 21930676 (Version 2)
Quarter: 2023Q2

REPORT INFORMATION
  Report Type: Spontaneous
  Country: US (occurrence: US)
  Receive Date: 20230131
  Receipt Date: 20230405
  Transmission Date: 20230722
  Serious: No
  Sender: FDA-Public Use
  Company Number: US-DSJP-DSU-2023-103385AA

PATIENT
  Age: 23 Year
  Sex: Male

DRUGS (2)
  1. TURALIO [Suspect]
     Active Substance: PEXIDARTINIB HYDROCHLORIDE
     Indication: Giant cell tumour of tendon sheath
     Dosage: 400 MG, BID (400 MG IN THEMORNING AND 400 MG AT NIGHT)
     Route: 048
     Dates: start: 20221013
  2. TURALIO [Suspect]
     Active Substance: PEXIDARTINIB HYDROCHLORIDE
     Dosage: 250 MG, BID
     Route: 048
     Dates: start: 20221016

REACTIONS (2)
  - Therapy change [Unknown]
  - No adverse event [Unknown]

NARRATIVE: CASE EVENT DATE: 20221016
